FAERS Safety Report 5185335-X (Version None)
Quarter: 2006Q4

REPORT INFORMATION
  Report Type: 
  Country: None (occurrence: None)
  Receive Date: 20061212
  Receipt Date: 20061129
  Transmission Date: 20070319
  Serious: Yes (Death)
  Sender: FDA-Public Use
  Company Number: 2006PV025435

PATIENT
  Age: 58 Year
  Sex: Male

DRUGS (11)
  1. SYMLIN [Suspect]
     Indication: DIABETES MELLITUS NON-INSULIN-DEPENDENT
     Dosage: 15 MCG; TID; SC;  120  MCGP TID
     Route: 058
     Dates: start: 20060701, end: 20060101
  2. SYMLIN [Suspect]
     Indication: DIABETES MELLITUS NON-INSULIN-DEPENDENT
     Dosage: 15 MCG; TID; SC;  120  MCGP TID
     Route: 058
     Dates: start: 20060101, end: 20061023
  3. WELLBUTRIN [Concomitant]
  4. AMILORIDE HYDROCHLORIDE [Concomitant]
  5. LASIX [Concomitant]
  6. COREG [Concomitant]
  7. LIPITOR [Concomitant]
  8. MAGNESIUM OXIDE [Concomitant]
  9. AMARYL [Concomitant]
  10. NOVOLOG MIX 70/30 [Concomitant]
  11. LANTUS [Concomitant]

REACTIONS (5)
  - BLOOD GLUCOSE INCREASED [None]
  - CONDITION AGGRAVATED [None]
  - HYPERTENSION [None]
  - MYOCARDIAL INFARCTION [None]
  - TREATMENT NONCOMPLIANCE [None]
